FAERS Safety Report 4884956-9 (Version None)
Quarter: 2006Q1

REPORT INFORMATION
  Report Type: 
  Country: None (occurrence: None)
  Receive Date: 20060119
  Receipt Date: 20060110
  Transmission Date: 20060701
  Serious: Yes (Hospitalization, Other)
  Sender: FDA-Public Use
  Company Number: US-JNJFOC-20040303070

PATIENT
  Sex: Female
  Weight: 74.39 kg

DRUGS (11)
  1. DURAGESIC-100 [Suspect]
     Route: 062
  2. DURAGESIC-100 [Suspect]
     Route: 062
  3. DURAGESIC-100 [Suspect]
     Route: 062
  4. VICODIN [Concomitant]
  5. VICODIN [Concomitant]
  6. TRAZODONE HCL [Concomitant]
  7. RISPERDAL [Concomitant]
     Route: 048
  8. MOBIC [Concomitant]
  9. PROTONIX [Concomitant]
     Route: 048
  10. NEURONTIN [Concomitant]
  11. NEURONTIN [Concomitant]

REACTIONS (8)
  - APPLICATION SITE ABSCESS [None]
  - APPLICATION SITE SCAR [None]
  - DEVICE FAILURE [None]
  - INJURY [None]
  - IRRITABLE BOWEL SYNDROME [None]
  - MICROCYTIC ANAEMIA [None]
  - PHARMACEUTICAL PRODUCT COMPLAINT [None]
  - STAPHYLOCOCCAL INFECTION [None]
